FAERS Safety Report 9024578 (Version 2)
Quarter: 2013Q1

REPORT INFORMATION
  Report Type: Spontaneous
  Country: FR (occurrence: FR)
  Receive Date: 20130121
  Receipt Date: 20130304
  Transmission Date: 20140127
  Serious: Yes (Hospitalization, Other)
  Sender: FDA-Public Use
  Company Number: FR-BRISTOL-MYERS SQUIBB COMPANY-17290057

PATIENT
  Age: 91 Year
  Sex: Female
  Weight: 80 kg

DRUGS (9)
  1. COUMADIN TABS 2 MG [Suspect]
     Indication: ATRIAL FIBRILLATION
     Dosage: DOSE:HALF OF 2MG COUMADINE TABS
     Route: 048
     Dates: end: 20121204
  2. TAREG [Concomitant]
     Dosage: 1 DF: 80 UNITS NOS
  3. CHOLECALCIFEROL [Concomitant]
  4. LASILIX [Concomitant]
  5. ALLERGODIL [Concomitant]
  6. IMODIUM [Concomitant]
  7. DOLIPRANE [Concomitant]
  8. LEVOTHYROX [Concomitant]
  9. STILNOX [Concomitant]

REACTIONS (4)
  - Subdural haematoma [Recovered/Resolved]
  - International normalised ratio increased [Recovered/Resolved]
  - Hypertension [Unknown]
  - Fall [Unknown]
